FAERS Safety Report 14826235 (Version 2)
Quarter: 2020Q2

REPORT INFORMATION
  Report Type: Spontaneous
  Country: US (occurrence: US)
  Receive Date: 20180430
  Receipt Date: 20200409
  Transmission Date: 20200713
  Serious: No
  Sender: FDA-Public Use
  Company Number: US-TEVA-2018-US-869490

PATIENT
  Sex: Female
  Weight: 72 kg

DRUGS (5)
  1. LEVOFLOXACIN. [Suspect]
     Active Substance: LEVOFLOXACIN
     Route: 050
  2. AMINOSALICYLIC ACID [Suspect]
     Active Substance: AMINOSALICYLIC ACID
     Route: 050
  3. DELAMANID [Suspect]
     Active Substance: DELAMANID
     Route: 050
  4. LINEZOLID. [Suspect]
     Active Substance: LINEZOLID
     Route: 050
  5. CYCLOSERINE. [Suspect]
     Active Substance: CYCLOSERINE
     Route: 050

REACTIONS (2)
  - Paternal exposure timing unspecified [Unknown]
  - Abortion induced [Unknown]
